FAERS Safety Report 4436934-1 (Version None)
Quarter: 2004Q3

REPORT INFORMATION
  Report Type: 
  Country: None (occurrence: None)
  Receive Date: 20040827
  Receipt Date: 20040813
  Transmission Date: 20050211
  Serious: Yes (Hospitalization)
  Sender: FDA-Public Use
  Company Number: S04-USA-04867-01

PATIENT
  Age: 61 Year
  Sex: Female

DRUGS (23)
  1. LEXAPRO [Suspect]
     Indication: DEPRESSION
     Dosage: 15 MG QD PO
     Route: 048
     Dates: start: 20030926, end: 20031013
  2. LEXAPRO [Suspect]
     Indication: DEPRESSION
     Dosage: 5 MG QD PO
     Route: 048
     Dates: start: 20030628, end: 20030714
  3. LEXAPRO [Suspect]
     Indication: DEPRESSION
     Dosage: 10 MG QD PO
     Route: 048
     Dates: start: 20030715, end: 20030925
  4. LEXAPRO [Suspect]
     Indication: DEPRESSION
     Dosage: 10 MG QD PO
     Route: 048
     Dates: start: 20031014, end: 20031124
  5. LEXAPRO [Suspect]
     Indication: DEPRESSION
     Dosage: 15 MG QD PO
     Route: 048
     Dates: start: 20031125, end: 20031215
  6. LEXAPRO [Suspect]
     Indication: DEPRESSION
     Dosage: 5 MG QHS PO
     Route: 048
     Dates: start: 20031215, end: 20040201
  7. LEXAPRO [Suspect]
     Indication: DEPRESSION
     Dosage: 10 MG QAM  PO
     Route: 048
     Dates: start: 20031215, end: 20040201
  8. LEXAPRO [Suspect]
     Indication: DEPRESSION
     Dosage: 5 MG QD PO
     Route: 048
     Dates: start: 20040427, end: 20040503
  9. LEXAPRO [Suspect]
     Indication: DEPRESSION
     Dosage: 5 MG QD PO
     Route: 048
     Dates: start: 20040510, end: 20040516
  10. LEXAPRO [Suspect]
     Indication: DEPRESSION
     Dosage: 10 MG QD PO
     Route: 048
     Dates: start: 20040210, end: 20040526
  11. LEXAPRO [Suspect]
     Indication: DEPRESSION
     Dosage: 10 MG QD PO
     Route: 048
     Dates: start: 20040517, end: 20040617
  12. . [Suspect]
  13. LEXAPRO [Suspect]
     Indication: DEPRESSION
     Dosage: 15 MG QD PO
     Route: 048
     Dates: start: 20040618, end: 20040802
  14. LEXAPRO [Suspect]
     Indication: DEPRESSION
     Dosage: 10 MG QD PO
     Route: 048
     Dates: start: 20040803
  15. PROZAC [Suspect]
     Dosage: 20 MG QD PO
     Route: 048
     Dates: start: 20040201, end: 20040201
  16. KLONOPIN [Concomitant]
  17. DIGOXIN [Concomitant]
  18. TIAZAC 9DILTIAZEM HYDROCHLORIDE) [Concomitant]
  19. METHOTREXATE [Concomitant]
  20. OMEGA 3 FATTY ACIDS [Concomitant]
  21. ISOSORBIDE MONONITRATE [Concomitant]
  22. WARFARIN SODIUM [Concomitant]
  23. NITROGLYCERIN [Concomitant]

REACTIONS (27)
  - ABDOMINAL PAIN [None]
  - ANGLE CLOSURE GLAUCOMA [None]
  - ARTHRALGIA [None]
  - CIRCADIAN RHYTHM SLEEP DISORDER [None]
  - CYSTITIS INTERSTITIAL [None]
  - DIPLOPIA [None]
  - DRY MOUTH [None]
  - GASTRIC DISORDER [None]
  - HYPERHIDROSIS [None]
  - HYPERSENSITIVITY [None]
  - INSOMNIA [None]
  - INTERVERTEBRAL DISC DEGENERATION [None]
  - MEDICATION ERROR [None]
  - METASTASES TO BONE [None]
  - METASTASES TO LIVER [None]
  - MUSCLE INJURY [None]
  - MUSCLE SPASMS [None]
  - MYALGIA [None]
  - OSTEOARTHRITIS [None]
  - PELVIC MUSCLES INADEQUATE [None]
  - PNEUMONIA BACTERIAL [None]
  - RENAL DISORDER [None]
  - SWOLLEN TONGUE [None]
  - TEARFULNESS [None]
  - URETHRAL DISORDER [None]
  - URGE INCONTINENCE [None]
  - URINARY RETENTION [None]
